FAERS Safety Report 16872276 (Version 1)
Quarter: 2019Q4

REPORT INFORMATION
  Report Type: Report from Study
  Country: IT (occurrence: IT)
  Receive Date: 20191001
  Receipt Date: 20191001
  Transmission Date: 20200122
  Serious: Yes (Death, Hospitalization, Disabling)
  Sender: FDA-Public Use
  Company Number: PHHO2018IT005213

PATIENT
  Age: 74 Year
  Sex: Female
  Weight: 48 kg

DRUGS (2)
  1. LETROZOLE. [Suspect]
     Active Substance: LETROZOLE
     Indication: BREAST CANCER
     Dosage: 2.5 MG, QD
     Route: 048
     Dates: start: 20171106
  2. LEE011 [Suspect]
     Active Substance: RIBOCICLIB
     Indication: BREAST CANCER
     Dosage: 600 MG, QD
     Route: 048
     Dates: start: 20171106

REACTIONS (3)
  - Cerebral haemorrhage [Fatal]
  - Coma [Not Recovered/Not Resolved]
  - Fall [Fatal]

NARRATIVE: CASE EVENT DATE: 20180413
